FAERS Safety Report 5088907-6 (Version None)
Quarter: 2006Q3

REPORT INFORMATION
  Report Type: 
  Country: None (occurrence: None)
  Receive Date: 20060825
  Receipt Date: 20060810
  Transmission Date: 20061208
  Serious: Yes (Death, Other)
  Sender: FDA-Public Use
  Company Number: SG-MERCK-0608SGP00002

PATIENT
  Sex: Male

DRUGS (2)
  1. VYTORIN [Suspect]
     Indication: BLOOD CHOLESTEROL INCREASED
     Route: 048
  2. STATIN (UNSPECIFIED) [Concomitant]
     Route: 048

REACTIONS (2)
  - DEATH [None]
  - RHABDOMYOLYSIS [None]
